FAERS Safety Report 24083567 (Version 1)
Quarter: 2024Q3

REPORT INFORMATION
  Report Type: Spontaneous
  Country: US (occurrence: US)
  Receive Date: 20240712
  Receipt Date: 20240712
  Transmission Date: 20241017
  Serious: Yes (Death, Life-Threatening, Other)
  Sender: AUROBINDO
  Company Number: US-MLMSERVICE-20240627-PI112241-00117-1

PATIENT
  Age: 63 Year
  Sex: Female

DRUGS (5)
  1. DEXAMETHASONE [Suspect]
     Active Substance: DEXAMETHASONE
     Indication: Hemiparesis
     Dosage: 4 MG TWICE DAILY
     Route: 065
  2. BEVACIZUMAB [Concomitant]
     Active Substance: BEVACIZUMAB
     Indication: Steroid dependence
     Dosage: UNK
     Route: 065
  3. LOMUSTINE [Concomitant]
     Active Substance: LOMUSTINE
     Indication: Neoplasm
     Dosage: UNK
     Route: 065
  4. LENVATINIB [Concomitant]
     Active Substance: LENVATINIB
     Indication: Metastasis
     Dosage: UNK
     Route: 065
  5. TEMOZOLOMIDE [Concomitant]
     Active Substance: TEMOZOLOMIDE
     Indication: Glioblastoma
     Dosage: 75 MILLIGRAM/SQ. METER
     Route: 065

REACTIONS (1)
  - Metastases to lung [Fatal]
